FAERS Safety Report 7400595-X (Version None)
Quarter: 2011Q2

REPORT INFORMATION
  Report Type: 
  Country: None (occurrence: None)
  Receive Date: 20110407
  Receipt Date: 20110331
  Transmission Date: 20111010
  Serious: Yes (Life-Threatening)
  Sender: FDA-Public Use
  Company Number: FR-PFIZER INC-FR-WYE-H17193910

PATIENT
  Age: 65 Year
  Sex: Female

DRUGS (3)
  1. ROCEPHIN [Suspect]
     Dosage: UNK
     Dates: start: 20100730, end: 20100809
  2. OFLOCET [Suspect]
     Dosage: UNK
     Dates: start: 20100730, end: 20100803
  3. EUPANTOL [Suspect]
     Dosage: UNK
     Route: 048
     Dates: end: 20100809

REACTIONS (1)
  - PANCYTOPENIA [None]
